FAERS Safety Report 8976666 (Version 1)
Quarter: 2012Q4

REPORT INFORMATION
  Report Type: 
  Country: BR (occurrence: BR)
  Receive Date: 20121220
  Receipt Date: 20121220
  Transmission Date: 20130627
  Serious: Yes (Other)
  Sender: FDA-Public Use
  Company Number: BR-PFIZER INC-2012319560

PATIENT
  Age: 36 Year
  Sex: Female

DRUGS (1)
  1. DOSTINEX [Suspect]
     Indication: PROLACTIN HIGH
     Dosage: 1 mg, single
     Route: 048
     Dates: start: 20121024, end: 20121024

REACTIONS (10)
  - Anisocytosis [Recovering/Resolving]
  - Dyspnoea [Unknown]
  - Hypersensitivity [Unknown]
  - Heart rate increased [Unknown]
  - Blood pressure increased [Unknown]
  - Toxicity to various agents [Unknown]
  - Erythema [Unknown]
  - Pruritus [Unknown]
  - Feeling hot [Unknown]
  - Skin hypertrophy [Unknown]
